FAERS Safety Report 26171313 (Version 1)
Quarter: 2025Q4

REPORT INFORMATION
  Report Type: Spontaneous
  Country: JP (occurrence: JP)
  Receive Date: 20251217
  Receipt Date: 20251217
  Transmission Date: 20260118
  Serious: Yes (Other)
  Sender: ORGANON
  Company Number: JP-JT-EVA202504319ORGANON

PATIENT
  Age: 9 Decade
  Sex: Female

DRUGS (1)
  1. VTAMA [Suspect]
     Active Substance: TAPINAROF
     Indication: Psoriasis
     Dosage: UNK
     Route: 048

REACTIONS (1)
  - Erythema multiforme [Recovered/Resolved]
